FAERS Safety Report 6542982-8 (Version None)
Quarter: 2010Q1

REPORT INFORMATION
  Report Type: 
  Country: None (occurrence: None)
  Receive Date: 20100120
  Receipt Date: 20100111
  Transmission Date: 20100710
  Serious: Yes (Other)
  Sender: FDA-Public Use
  Company Number: US-ROCHE-678954

PATIENT
  Sex: Male
  Weight: 57.3 kg

DRUGS (1)
  1. ISOTRETINOIN [Suspect]
     Indication: ACNE
     Dosage: THE PATIENT WAS DISPENSED LAST DOSE OF ISOTRETINOIN 40 MG IN MAY 2009
     Route: 048
     Dates: start: 20090101, end: 20090501

REACTIONS (1)
  - SUICIDE ATTEMPT [None]
